FAERS Safety Report 7608690-7 (Version None)
Quarter: 2011Q3

REPORT INFORMATION
  Report Type: 
  Country: None (occurrence: None)
  Receive Date: 20110714
  Receipt Date: 20110705
  Transmission Date: 20111222
  Serious: Yes (Congenital Anomaly, Other)
  Sender: FDA-Public Use
  Company Number: US-AMGEN-USASP2011034363

PATIENT
  Sex: Female

DRUGS (4)
  1. ENBREL [Suspect]
     Dates: start: 20050101
  2. ENBREL [Suspect]
     Dosage: 50 MG, QWK
     Route: 064
     Dates: start: 20050101
  3. ENBREL [Suspect]
     Dosage: 50 MG, QWK
     Route: 064
     Dates: start: 20050101
  4. ENBREL [Suspect]
     Dates: start: 20050101

REACTIONS (3)
  - FOOD INTOLERANCE [None]
  - GASTRIC DISORDER [None]
  - TALIPES [None]
